FAERS Safety Report 11846974 (Version 1)
Quarter: 2015Q4

REPORT INFORMATION
  Report Type: Spontaneous
  Country: US (occurrence: US)
  Receive Date: 20151217
  Receipt Date: 20151217
  Transmission Date: 20160305
  Serious: No
  Sender: FDA-Public Use
  Company Number: US-ROCHE-1532205

PATIENT
  Sex: Female

DRUGS (1)
  1. TAMIFLU [Suspect]
     Active Substance: OSELTAMIVIR PHOSPHATE
     Indication: INFLUENZA
     Route: 065
     Dates: start: 20150124, end: 20150129

REACTIONS (6)
  - Drug ineffective [Unknown]
  - Ear discomfort [Unknown]
  - Oropharyngeal pain [Unknown]
  - Pain [Unknown]
  - Fatigue [Unknown]
  - Pyrexia [Unknown]
